FAERS Safety Report 11874172 (Version 1)
Quarter: 2015Q4

REPORT INFORMATION
  Report Type: Spontaneous
  Country: US (occurrence: US)
  Receive Date: 20151229
  Receipt Date: 20151229
  Transmission Date: 20160305
  Serious: Yes (Other)
  Sender: FDA-Public Use
  Company Number: US-BEH-2015057078

PATIENT
  Age: 47 Year
  Sex: Female
  Weight: 157 kg

DRUGS (42)
  1. HIZENTRA [Suspect]
     Active Substance: HUMAN IMMUNOGLOBULIN G
     Indication: IMMUNODEFICIENCY COMMON VARIABLE
     Dosage: 1 GM 5 ML VIAL
     Route: 058
     Dates: start: 20120907
  2. HIZENTRA [Suspect]
     Active Substance: HUMAN IMMUNOGLOBULIN G
     Indication: HYPOGAMMAGLOBULINAEMIA
     Dosage: 2 GM 10 ML VIAL
     Route: 058
     Dates: start: 20120907
  3. POTASSIUM [Concomitant]
     Active Substance: POTASSIUM
  4. LISINOPRIL. [Concomitant]
     Active Substance: LISINOPRIL
  5. HYDROCODONE [Concomitant]
     Active Substance: HYDROCODONE
  6. CARDIZEM [Concomitant]
     Active Substance: DILTIAZEM HYDROCHLORIDE
  7. PLAVIX [Concomitant]
     Active Substance: CLOPIDOGREL BISULFATE
  8. GABAPENTIN. [Concomitant]
     Active Substance: GABAPENTIN
  9. FUROSEMIDE. [Concomitant]
     Active Substance: FUROSEMIDE
  10. CLOBETASOL [Concomitant]
     Active Substance: CLOBETASOL
  11. VITAMIN D [Concomitant]
     Active Substance: CHOLECALCIFEROL
  12. AMOXICILLIN. [Concomitant]
     Active Substance: AMOXICILLIN
  13. FOSAMAX [Concomitant]
     Active Substance: ALENDRONATE SODIUM
  14. ZYRTEC [Concomitant]
     Active Substance: CETIRIZINE HYDROCHLORIDE
  15. SELENIUM [Concomitant]
     Active Substance: SELENIUM
  16. TAMIFLU [Concomitant]
     Active Substance: OSELTAMIVIR PHOSPHATE
  17. LIPITOR [Concomitant]
     Active Substance: ATORVASTATIN CALCIUM
  18. OXYGEN. [Concomitant]
     Active Substance: OXYGEN
  19. CYMBALTA [Concomitant]
     Active Substance: DULOXETINE HYDROCHLORIDE
  20. FINASTERIDE. [Concomitant]
     Active Substance: FINASTERIDE
  21. ASPIRIN. [Concomitant]
     Active Substance: ASPIRIN
  22. ISOSORBIDE. [Concomitant]
     Active Substance: ISOSORBIDE
  23. RESTASIS [Concomitant]
     Active Substance: CYCLOSPORINE
  24. LACTULOSE. [Concomitant]
     Active Substance: LACTULOSE
  25. LOVAZA [Concomitant]
     Active Substance: OMEGA-3-ACID ETHYL ESTERS
  26. MOBIC [Concomitant]
     Active Substance: MELOXICAM
  27. PREDNISONE. [Concomitant]
     Active Substance: PREDNISONE
  28. AMITRIPTYLINE [Concomitant]
     Active Substance: AMITRIPTYLINE
  29. EVOXAC [Concomitant]
     Active Substance: CEVIMELINE HYDROCHLORIDE
  30. EPIPEN [Concomitant]
     Active Substance: EPINEPHRINE
  31. TOPAMAX [Concomitant]
     Active Substance: TOPIRAMATE
  32. METFORMIN [Concomitant]
     Active Substance: METFORMIN HYDROCHLORIDE
  33. XOPENEX [Concomitant]
     Active Substance: LEVALBUTEROL HYDROCHLORIDE
  34. MUCINEX [Concomitant]
     Active Substance: GUAIFENESIN
  35. DIPHENHYDRAMINE. [Concomitant]
     Active Substance: DIPHENHYDRAMINE
  36. SINGULAIR [Concomitant]
     Active Substance: MONTELUKAST SODIUM
  37. NASONEX [Concomitant]
     Active Substance: MOMETASONE FUROATE
  38. OSCAL [Concomitant]
     Active Substance: CALCIUM CARBONATE
  39. CLONAZEPAM. [Concomitant]
     Active Substance: CLONAZEPAM
  40. FENTANYL. [Concomitant]
     Active Substance: FENTANYL
  41. ADVAIR HFA [Concomitant]
     Active Substance: FLUTICASONE PROPIONATE\SALMETEROL XINAFOATE
  42. PRIMIDONE. [Concomitant]
     Active Substance: PRIMIDONE

REACTIONS (1)
  - Respiratory tract infection [Unknown]

NARRATIVE: CASE EVENT DATE: 20151215
